FAERS Safety Report 6897698-5 (Version None)
Quarter: 2010Q3

REPORT INFORMATION
  Report Type: 
  Country: None (occurrence: None)
  Receive Date: 20100802
  Receipt Date: 20070709
  Transmission Date: 20110219
  Serious: No
  Sender: FDA-Public Use
  Company Number: US-PFIZER INC-2007057871

PATIENT
  Sex: Female
  Weight: 108.18 kg

DRUGS (16)
  1. LYRICA [Suspect]
     Indication: NEUROPATHY PERIPHERAL
     Dates: start: 20070515
  2. LIPITOR [Concomitant]
  3. TRICOR [Concomitant]
  4. PLAVIX [Concomitant]
  5. LISINOPRIL [Concomitant]
  6. METOPROLOL [Concomitant]
  7. NORVASC [Concomitant]
  8. HYDROCHLOROTHIAZIDE [Concomitant]
  9. ACETYLSALICYLIC ACID SRT [Concomitant]
  10. METFORMIN HCL [Concomitant]
  11. GLIPIZIDE [Concomitant]
  12. ACTOS [Concomitant]
     Indication: DIABETES MELLITUS
  13. NEXIUM [Concomitant]
  14. LEVOXYL [Concomitant]
  15. POTASSIUM CHLORIDE [Concomitant]
  16. AMITRIPTYLINE HYDROCHLORIDE [Concomitant]

REACTIONS (2)
  - HUNGER [None]
  - WEIGHT INCREASED [None]
